FAERS Safety Report 5497610-X (Version None)
Quarter: 2007Q4

REPORT INFORMATION
  Report Type: 
  Country: None (occurrence: None)
  Receive Date: 20071025
  Receipt Date: 20061215
  Transmission Date: 20080405
  Serious: No
  Sender: FDA-Public Use
  Company Number: A0631741A

PATIENT
  Sex: Female

DRUGS (2)
  1. ADVAIR DISKUS 100/50 [Suspect]
     Indication: ASTHMA
     Dosage: 1PUFF TWICE PER DAY
     Route: 055
     Dates: start: 20061215
  2. PREDNISONE TAPER [Concomitant]

REACTIONS (7)
  - COUGH [None]
  - DISTURBANCE IN ATTENTION [None]
  - DYSPNOEA [None]
  - HEADACHE [None]
  - HEART RATE INCREASED [None]
  - HYPERHIDROSIS [None]
  - TREMOR [None]
